FAERS Safety Report 5816893-7 (Version None)
Quarter: 2008Q3

REPORT INFORMATION
  Report Type: 
  Country: None (occurrence: None)
  Receive Date: 20080721
  Receipt Date: 20080707
  Transmission Date: 20090109
  Serious: Yes (Other)
  Sender: FDA-Public Use
  Company Number: BR-GENENTECH-264370

PATIENT
  Age: 55 Year
  Sex: Female

DRUGS (2)
  1. MABTHERA [Suspect]
     Indication: SYSTEMIC LUPUS ERYTHEMATOSUS
     Dosage: 1000 MG, UNK
     Route: 042
     Dates: start: 20080502, end: 20080502
  2. UNSPECIFIED DRUG [Suspect]
     Indication: HEPATITIS C
     Dosage: UNK
     Dates: start: 20080101

REACTIONS (1)
  - RENAL FAILURE [None]
